FAERS Safety Report 9888051 (Version 2)
Quarter: 2014Q1

REPORT INFORMATION
  Report Type: Spontaneous
  Country: DE (occurrence: None)
  Receive Date: 20140207
  Receipt Date: 20140214
  Transmission Date: 20141002
  Serious: Yes (Other)
  Sender: FDA-Public Use
  Company Number: 1401-0214

PATIENT
  Age: 77 Year
  Sex: Female

DRUGS (2)
  1. EYLEA [Suspect]
     Indication: AGE-RELATED MACULAR DEGENERATION
     Route: 031
     Dates: start: 20131217, end: 20131217
  2. ASPIRIN CARDIO (ACETYLSALICYLIC ACID) [Concomitant]

REACTIONS (1)
  - Retinal haemorrhage [None]
